FAERS Safety Report 8355055-9 (Version None)
Quarter: 2012Q2

REPORT INFORMATION
  Report Type: 
  Country: None (occurrence: None)
  Receive Date: 20120511
  Receipt Date: 20120504
  Transmission Date: 20120825
  Serious: Yes (Other)
  Sender: FDA-Public Use
  Company Number: US-GENZYME-FABR-1002496

PATIENT
  Age: 50 Year
  Sex: Female

DRUGS (3)
  1. TYLENOL (CAPLET) [Concomitant]
     Indication: PREMEDICATION
     Dosage: UNK
     Route: 065
  2. CLARITIN [Concomitant]
     Indication: PREMEDICATION
     Dosage: UNK
     Route: 065
  3. FABRAZYME [Suspect]
     Indication: FABRY'S DISEASE
     Dosage: UNK UNK, Q2W
     Route: 042
     Dates: start: 20090101

REACTIONS (1)
  - APPENDICITIS [None]
